FAERS Safety Report 9173993 (Version 1)
Quarter: 2013Q1

REPORT INFORMATION
  Report Type: Spontaneous
  Country: FR (occurrence: None)
  Receive Date: 20130315
  Receipt Date: 20130315
  Transmission Date: 20140127
  Serious: Yes (Hospitalization)
  Sender: FDA-Public Use
  Company Number: DSM-2013-00319

PATIENT
  Age: 75 Year
  Sex: Female

DRUGS (5)
  1. ALTEIS (OLMESARTAN MEDOXOMIL) (TABLET) (OLMESARTAN MEDOXOMIL) [Suspect]
     Indication: HYPERTENSION
     Route: 048
  2. INEXIUM [Concomitant]
  3. PARACETAMOL ALPHARMA(PARACETAMOL)(PARACETAMOL) [Concomitant]
  4. DUPHALAC(LACTULOSE)(LACTULOSE) [Concomitant]
  5. URBANYL [Concomitant]

REACTIONS (10)
  - Orthostatic hypotension [None]
  - Fall [None]
  - Craniocerebral injury [None]
  - Confusional state [None]
  - Disorientation [None]
  - Logorrhoea [None]
  - Mania [None]
  - Vertigo [None]
  - Tinnitus [None]
  - Skull fractured base [None]
